FAERS Safety Report 15507301 (Version 3)
Quarter: 2018Q4

REPORT INFORMATION
  Report Type: Spontaneous
  Country: US (occurrence: US)
  Receive Date: 20181016
  Receipt Date: 20181205
  Transmission Date: 20190205
  Serious: Yes (Death)
  Sender: FDA-Public Use
  Company Number: US-PFIZER INC-2018413644

PATIENT
  Age: 71 Year
  Sex: Female
  Weight: 78 kg

DRUGS (3)
  1. IBRANCE [Suspect]
     Active Substance: PALBOCICLIB
     Indication: BREAST CANCER STAGE IV
     Dosage: 125 MG, CYCLIC(125MG CAPSULE, 1 CAPSULE DAILY 21 DAYS ON AND THEN OFF FOR 7 DAYS)
     Route: 048
     Dates: start: 201809
  2. LETROZOLE. [Concomitant]
     Active Substance: LETROZOLE
     Indication: BREAST CANCER METASTATIC
     Dosage: 2.5 MG, 1X/DAY (EVERY EVENING)
     Route: 048
  3. HYDROCODONE/ACETAMINOPHEN [Concomitant]
     Active Substance: ACETAMINOPHEN\HYDROCODONE
     Dosage: 1 DF, 1X/DAY (HYDROCODONE BITARTRATE-10, PARACETAMOL-325)

REACTIONS (10)
  - Alopecia [Not Recovered/Not Resolved]
  - Lethargy [Unknown]
  - Vomiting [Unknown]
  - Death [Fatal]
  - Somnolence [Not Recovered/Not Resolved]
  - Dizziness [Not Recovered/Not Resolved]
  - Fatigue [Unknown]
  - Fall [Unknown]
  - Platelet count decreased [Unknown]
  - Presyncope [Unknown]

NARRATIVE: CASE EVENT DATE: 2018
